FAERS Safety Report 9994362 (Version 12)
Quarter: 2015Q3

REPORT INFORMATION
  Report Type: Report from Study
  Country: KR (occurrence: KR)
  Receive Date: 20140311
  Receipt Date: 20150729
  Transmission Date: 20151125
  Serious: Yes (Death, Hospitalization)
  Sender: FDA-Public Use
  Company Number: KR-ROCHE-1357907

PATIENT
  Age: 48 Year
  Sex: Female
  Weight: 37.5 kg

DRUGS (66)
  1. DEXTROSE. [Concomitant]
     Active Substance: DEXTROSE
     Route: 065
     Dates: start: 20140316, end: 20140317
  2. FENTANYL. [Concomitant]
     Active Substance: FENTANYL
     Indication: ABDOMINAL PAIN
     Route: 065
     Dates: start: 20140228, end: 20140228
  3. SUCRALFATE. [Concomitant]
     Active Substance: SUCRALFATE
     Indication: PROPHYLAXIS
     Route: 065
     Dates: start: 20140304, end: 20140318
  4. MAGNESIUM OXIDE. [Concomitant]
     Active Substance: MAGNESIUM OXIDE
     Route: 065
     Dates: start: 20140321, end: 20140321
  5. COMBIFLEX LIPID [Concomitant]
     Indication: ASTHENIA
     Route: 065
     Dates: start: 20140319, end: 20140320
  6. RED BLOOD CELLS [Concomitant]
     Active Substance: HUMAN RED BLOOD CELL
     Route: 065
     Dates: start: 20140219, end: 20140219
  7. CHLORPHENIRAMINE. [Concomitant]
     Active Substance: CHLORPHENIRAMINE
     Route: 065
     Dates: start: 20140306, end: 20140306
  8. METOCLOPRAMIDE. [Concomitant]
     Active Substance: METOCLOPRAMIDE
     Indication: PREMEDICATION
     Route: 065
     Dates: start: 20131211, end: 20140313
  9. HALOPERIDOL. [Concomitant]
     Active Substance: HALOPERIDOL
     Indication: SEDATION
     Route: 065
     Dates: start: 20140228, end: 20140228
  10. FUROSEMIDE. [Concomitant]
     Active Substance: FUROSEMIDE
     Indication: OEDEMA
     Route: 065
     Dates: start: 20140302, end: 20140303
  11. NAPROXEN. [Concomitant]
     Active Substance: NAPROXEN
     Indication: ABDOMINAL PAIN
     Route: 065
     Dates: start: 20140320, end: 20140321
  12. HYDROMORPHONE [Concomitant]
     Active Substance: HYDROMORPHONE
     Indication: PAIN
     Route: 065
     Dates: start: 20140307, end: 20140311
  13. TARGIN [Concomitant]
     Active Substance: NALOXONE HYDROCHLORIDE\OXYCODONE HYDROCHLORIDE
     Indication: PAIN
     Route: 065
     Dates: start: 20140312, end: 20140313
  14. MEGESTROL [Concomitant]
     Active Substance: MEGESTROL
     Route: 065
     Dates: start: 20140316
  15. SODIUM CHLORIDE. [Concomitant]
     Active Substance: SODIUM CHLORIDE
     Indication: ACUTE KIDNEY INJURY
     Route: 065
     Dates: start: 20140313, end: 20140323
  16. RED BLOOD CELLS [Concomitant]
     Active Substance: HUMAN RED BLOOD CELL
     Route: 065
     Dates: start: 20140321, end: 20140321
  17. HYDROCORTISONE. [Concomitant]
     Active Substance: HYDROCORTISONE
     Indication: PROPHYLAXIS
     Route: 065
     Dates: start: 20140228, end: 20140228
  18. CHLORPHENIRAMINE. [Concomitant]
     Active Substance: CHLORPHENIRAMINE
     Route: 065
     Dates: start: 20140205, end: 20140205
  19. CHLORPHENIRAMINE. [Concomitant]
     Active Substance: CHLORPHENIRAMINE
     Route: 065
     Dates: start: 20140129, end: 20140129
  20. MYPOL [Concomitant]
     Indication: ABDOMINAL PAIN
     Route: 065
     Dates: start: 20131218, end: 20140225
  21. MORPHINE HCL [Concomitant]
     Active Substance: MORPHINE HYDROCHLORIDE
     Indication: ABDOMINAL PAIN
     Route: 065
     Dates: start: 20140226, end: 20140227
  22. ACTH [Concomitant]
     Active Substance: CORTICOTROPIN
     Route: 065
     Dates: start: 20140226, end: 20140226
  23. MIDAZOLAM [Concomitant]
     Active Substance: MIDAZOLAM\MIDAZOLAM HYDROCHLORIDE
     Indication: SEDATION
     Route: 065
     Dates: start: 20140227, end: 20140227
  24. FUROSEMIDE. [Concomitant]
     Active Substance: FUROSEMIDE
     Indication: ASCITES
     Route: 065
     Dates: start: 20140205, end: 20140212
  25. TRAMADOL. [Concomitant]
     Active Substance: TRAMADOL
     Indication: PAIN
     Route: 065
     Dates: start: 20140310, end: 20140310
  26. MAGNESIUM OXIDE. [Concomitant]
     Active Substance: MAGNESIUM OXIDE
     Indication: CONSTIPATION
     Route: 065
     Dates: start: 20140312, end: 20140313
  27. MAGNESIUM OXIDE. [Concomitant]
     Active Substance: MAGNESIUM OXIDE
     Route: 065
     Dates: start: 20140316, end: 20140316
  28. CHLORPHENIRAMINE. [Concomitant]
     Active Substance: CHLORPHENIRAMINE
     Route: 065
     Dates: start: 20140228, end: 20140228
  29. MORPHINE HCL [Concomitant]
     Active Substance: MORPHINE HYDROCHLORIDE
     Route: 065
     Dates: start: 20140317, end: 20140317
  30. MORPHINE HCL [Concomitant]
     Active Substance: MORPHINE HYDROCHLORIDE
     Route: 065
     Dates: start: 20140320, end: 20140320
  31. FENTANYL. [Concomitant]
     Active Substance: FENTANYL
     Indication: BACK PAIN
  32. FUROSEMIDE. [Concomitant]
     Active Substance: FUROSEMIDE
     Route: 065
     Dates: start: 20140213, end: 20140219
  33. VASELINE PURE [Concomitant]
     Active Substance: PETROLATUM
     Route: 065
     Dates: start: 20140304, end: 20140304
  34. LANSOPRAZOLE. [Concomitant]
     Active Substance: LANSOPRAZOLE
     Route: 065
     Dates: start: 20140319, end: 20140320
  35. ZOLPIDEM [Concomitant]
     Active Substance: ZOLPIDEM\ZOLPIDEM TARTRATE
     Indication: INSOMNIA
     Route: 065
     Dates: start: 20140313, end: 20140321
  36. RED BLOOD CELLS [Concomitant]
     Active Substance: HUMAN RED BLOOD CELL
     Route: 065
     Dates: start: 20140228, end: 20140228
  37. SMOFLIPID [Concomitant]
     Active Substance: FISH OIL\OLIVEOIL\SOYBEAN OIL\TRIGLYCERIDES,UNSPECIFIED LENGTH
     Route: 065
     Dates: start: 20140301, end: 20140301
  38. CHLORPHENIRAMINE. [Concomitant]
     Active Substance: CHLORPHENIRAMINE
     Route: 065
     Dates: start: 20140219, end: 20140219
  39. TRASTUZUMAB EMTANSINE [Suspect]
     Active Substance: ADO-TRASTUZUMAB EMTANSINE
     Indication: HER-2 POSITIVE GASTRIC CANCER
     Dosage: DATE OF MOST RECENT DOSE PRIOR TO ASCITES: 22/JAN/2014 (107.04MG).?DATE OF MOST RECENT DOSE PRIOR TO
     Route: 042
     Dates: start: 20131211
  40. OXYCODONE [Concomitant]
     Active Substance: OXYCODONE
     Indication: ABDOMINAL PAIN
     Route: 065
     Dates: start: 20131211, end: 20140225
  41. MYPOL [Concomitant]
     Indication: PAIN
     Route: 065
     Dates: start: 20140311, end: 20140312
  42. DEXTROSE. [Concomitant]
     Active Substance: DEXTROSE
     Route: 065
     Dates: start: 20140321, end: 20140323
  43. ACTH [Concomitant]
     Active Substance: CORTICOTROPIN
     Route: 065
     Dates: start: 20140321, end: 20140321
  44. DILTIAZEM [Concomitant]
     Active Substance: DILTIAZEM
     Indication: HYPERTENSION
     Route: 065
     Dates: start: 20140227, end: 20140227
  45. CHLORHEXIDINE [Concomitant]
     Active Substance: CHLORHEXIDINE
     Route: 065
     Dates: start: 20140307, end: 20140318
  46. LANSOPRAZOLE. [Concomitant]
     Active Substance: LANSOPRAZOLE
     Indication: PROPHYLAXIS
     Route: 065
     Dates: start: 20140305, end: 20140317
  47. NAPROXEN. [Concomitant]
     Active Substance: NAPROXEN
     Indication: FLANK PAIN
     Route: 065
     Dates: start: 20140313, end: 20140318
  48. KALITAKER [Concomitant]
     Indication: HYPERKALAEMIA
     Route: 065
     Dates: start: 20140318, end: 20140318
  49. RED BLOOD CELLS [Concomitant]
     Active Substance: HUMAN RED BLOOD CELL
     Indication: ANAEMIA
     Route: 065
     Dates: start: 20140129, end: 20140129
  50. PANTOPRAZOLE [Concomitant]
     Active Substance: PANTOPRAZOLE SODIUM
     Indication: GASTRITIS
     Route: 065
     Dates: start: 20140322, end: 20140323
  51. OXYCODONE [Concomitant]
     Active Substance: OXYCODONE
     Indication: BACK PAIN
  52. MORPHINE HCL [Concomitant]
     Active Substance: MORPHINE HYDROCHLORIDE
     Route: 065
     Dates: start: 20140313, end: 20140313
  53. FUROSEMIDE. [Concomitant]
     Active Substance: FUROSEMIDE
     Route: 065
     Dates: start: 20140318, end: 20140323
  54. MEGESTROL [Concomitant]
     Active Substance: MEGESTROL
     Indication: DECREASED APPETITE
     Route: 065
     Dates: start: 20140316, end: 20140319
  55. KETOPROFEN. [Concomitant]
     Active Substance: KETOPROFEN
     Indication: PAIN
     Route: 065
     Dates: start: 20140313, end: 20140323
  56. RED BLOOD CELLS [Concomitant]
     Active Substance: HUMAN RED BLOOD CELL
     Route: 065
     Dates: start: 20140213, end: 20140213
  57. RED BLOOD CELLS [Concomitant]
     Active Substance: HUMAN RED BLOOD CELL
     Route: 065
     Dates: start: 20140306, end: 20140306
  58. CHLORPHENIRAMINE. [Concomitant]
     Active Substance: CHLORPHENIRAMINE
     Route: 065
     Dates: start: 20140213, end: 20140213
  59. SODIUM BICARBONATE. [Concomitant]
     Active Substance: SODIUM BICARBONATE
     Indication: HYPERNATRAEMIA
  60. FAMOTIDINE. [Concomitant]
     Active Substance: FAMOTIDINE
     Indication: HAEMORRHAGE PROPHYLAXIS
     Route: 065
     Dates: start: 20140227, end: 20140227
  61. HEPARIN [Concomitant]
     Active Substance: HEPARIN SODIUM
     Indication: PHLEBITIS
     Route: 065
     Dates: start: 20140227, end: 20140227
  62. CHLORHEXIDINE [Concomitant]
     Active Substance: CHLORHEXIDINE
     Indication: STOMATITIS
     Dosage: TO BE GARGLED.
     Route: 065
     Dates: start: 20140227, end: 20140303
  63. DEXTROSE. [Concomitant]
     Active Substance: DEXTROSE
     Indication: ACUTE KIDNEY INJURY
     Route: 065
     Dates: start: 20140226, end: 20140227
  64. SODIUM BICARBONATE. [Concomitant]
     Active Substance: SODIUM BICARBONATE
     Indication: ELECTROLYTE IMBALANCE
     Route: 065
     Dates: start: 20140226, end: 20140227
  65. ENCOVER [Concomitant]
     Route: 065
     Dates: start: 20140227, end: 20140228
  66. NAPROXEN. [Concomitant]
     Active Substance: NAPROXEN
     Indication: PELVIC PAIN
     Route: 065
     Dates: start: 20140305, end: 20140305

REACTIONS (2)
  - Septic shock [Fatal]
  - Metabolic encephalopathy [Not Recovered/Not Resolved]

NARRATIVE: CASE EVENT DATE: 20140226
